FAERS Safety Report 11022282 (Version 9)
Quarter: 2015Q4

REPORT INFORMATION
  Report Type: Spontaneous
  Country: US (occurrence: US)
  Receive Date: 20150413
  Receipt Date: 20151228
  Transmission Date: 20160304
  Serious: No
  Sender: FDA-Public Use
  Company Number: US-009507513-1504USA004394

PATIENT
  Sex: Female

DRUGS (1)
  1. IMPLANON [Suspect]
     Active Substance: ETONOGESTREL
     Indication: CONTRACEPTION
     Dosage: 68 MG, UNK, IN LEFT ARM
     Route: 059
     Dates: start: 20120320

REACTIONS (4)
  - Incorrect drug administration duration [Not Recovered/Not Resolved]
  - Medical device complication [Not Recovered/Not Resolved]
  - Menstruation irregular [Unknown]
  - Amenorrhoea [Unknown]

NARRATIVE: CASE EVENT DATE: 2012
